FAERS Safety Report 8410060-9 (Version None)
Quarter: 2012Q2

REPORT INFORMATION
  Report Type: 
  Country: None (occurrence: None)
  Receive Date: 20120529
  Receipt Date: 20120511
  Transmission Date: 20120825
  Serious: Yes (Other)
  Sender: FDA-Public Use
  Company Number: 2012P1024807

PATIENT
  Sex: Female

DRUGS (4)
  1. WARFARIN SODIUM [Suspect]
     Indication: ANTICOAGULANT THERAPY
     Dosage: 7.5 MG; QD; 2 DAYS/WEEK; 5 MG;QD, 5 DAYS/WEEK;
     Dates: start: 20110901
  2. WARFARIN SODIUM [Suspect]
     Indication: THROMBOSIS
     Dosage: 7.5 MG; QD; 2 DAYS/WEEK; 5 MG;QD, 5 DAYS/WEEK;
     Dates: start: 20110901
  3. WARFARIN SODIUM [Suspect]
     Indication: ANTICOAGULANT THERAPY
     Dosage: 7.5 MG; QD; 2 DAYS/WEEK; 5 MG;QD, 5 DAYS/WEEK;
     Dates: start: 20110901
  4. WARFARIN SODIUM [Suspect]
     Indication: THROMBOSIS
     Dosage: 7.5 MG; QD; 2 DAYS/WEEK; 5 MG;QD, 5 DAYS/WEEK;
     Dates: start: 20110901

REACTIONS (4)
  - OEDEMA PERIPHERAL [None]
  - BLOOD PRESSURE INCREASED [None]
  - INCREASED TENDENCY TO BRUISE [None]
  - EPISTAXIS [None]
